FAERS Safety Report 13908325 (Version 2)
Quarter: 2017Q3

REPORT INFORMATION
  Report Type: Spontaneous
  Country: US (occurrence: US)
  Receive Date: 20170826
  Receipt Date: 20170830
  Transmission Date: 20171127
  Serious: Yes (Other)
  Sender: FDA-Public Use
  Company Number: US-ROCHE-1980992

PATIENT
  Age: 47 Year
  Sex: Female

DRUGS (1)
  1. OCREVUS [Suspect]
     Active Substance: OCRELIZUMAB
     Indication: MULTIPLE SCLEROSIS
     Route: 065
     Dates: start: 20170810

REACTIONS (13)
  - Loss of consciousness [Unknown]
  - Depressed level of consciousness [Unknown]
  - Electrolyte imbalance [Unknown]
  - Status epilepticus [Unknown]
  - Confusional state [Unknown]
  - Infusion related reaction [Unknown]
  - Somnolence [Unknown]
  - Coma [Unknown]
  - Incoherent [Unknown]
  - Seizure [Unknown]
  - Sepsis [Unknown]
  - Dyspnoea [Unknown]
  - Pneumonia [Unknown]

NARRATIVE: CASE EVENT DATE: 20170810
